FAERS Safety Report 6773205-2 (Version None)
Quarter: 2010Q2

REPORT INFORMATION
  Report Type: 
  Country: None (occurrence: None)
  Receive Date: 20100616
  Receipt Date: 20100605
  Transmission Date: 20101027
  Serious: Yes (Hospitalization, Other)
  Sender: FDA-Public Use
  Company Number: PHHY2010MY34170

PATIENT
  Age: 39 Year
  Sex: Male

DRUGS (2)
  1. CERTICAN [Suspect]
     Indication: CHRONIC ALLOGRAFT NEPHROPATHY
     Dosage: 0.75 MG, BID
  2. CERTICAN [Suspect]
     Dosage: 0.5 MG, BID

REACTIONS (5)
  - ACINETOBACTER INFECTION [None]
  - CANDIDIASIS [None]
  - INFECTION [None]
  - PNEUMONIA [None]
  - RESPIRATORY FAILURE [None]
